FAERS Safety Report 9441032 (Version 1)
Quarter: 2013Q3

REPORT INFORMATION
  Report Type: Spontaneous
  Country: US (occurrence: US)
  Receive Date: 20130805
  Receipt Date: 20130805
  Transmission Date: 20140515
  Serious: Yes (Hospitalization)
  Sender: FDA-Public Use
  Company Number: US-GLAXOSMITHKLINE-A0783789A

PATIENT
  Age: 40 Year
  Sex: Female

DRUGS (2)
  1. AVANDIA [Suspect]
     Indication: DIABETES MELLITUS
     Route: 048
     Dates: start: 20010410, end: 20070327
  2. AVANDAMET [Suspect]
     Indication: DIABETES MELLITUS
     Route: 048
     Dates: start: 20040407, end: 20041011

REACTIONS (3)
  - Myocardial ischaemia [Not Recovered/Not Resolved]
  - Cerebrovascular accident [Unknown]
  - Myocardial infarction [Unknown]
